FAERS Safety Report 5857563-9 (Version None)
Quarter: 2008Q3

REPORT INFORMATION
  Report Type: 
  Country: None (occurrence: None)
  Receive Date: 20080825
  Receipt Date: 20080825
  Transmission Date: 20090109
  Serious: No
  Sender: FDA-Public Use
  Company Number: None

PATIENT
  Age: 61 Year
  Sex: Male
  Weight: 99.7913 kg

DRUGS (1)
  1. INDOMETHACIN [Suspect]
     Indication: PAIN IN EXTREMITY
     Dosage: ONE TABLET DAILY PO
     Route: 048
     Dates: start: 20080816, end: 20080820

REACTIONS (2)
  - RASH [None]
  - SKIN ULCER [None]
